FAERS Safety Report 23713267 (Version 1)
Quarter: 2024Q2

REPORT INFORMATION
  Report Type: Spontaneous
  Country: EG (occurrence: EG)
  Receive Date: 20240405
  Receipt Date: 20240405
  Transmission Date: 20240716
  Serious: Yes (Other)
  Sender: FDA-Public Use
  Company Number: EG-SA-SAC20240404000038

PATIENT
  Age: 59 Year
  Sex: Female

DRUGS (12)
  1. PLAVIX [Suspect]
     Active Substance: CLOPIDOGREL BISULFATE
     Indication: Percutaneous coronary intervention
     Dosage: 450 MG, QD(450MG ONCE EVERY 24 HOUR
     Route: 048
  2. TRITACE MAX [Concomitant]
     Dosage: UNK
  3. HUMALOG [Concomitant]
     Active Substance: INSULIN LISPRO
     Dosage: UNK
  4. TRESIBA [Concomitant]
     Active Substance: INSULIN DEGLUDEC
     Dosage: UNK
  5. METOPROLOL SUCCINATE [Concomitant]
     Active Substance: METOPROLOL SUCCINATE
     Dosage: UNK
  6. ASPIRIN [Concomitant]
     Active Substance: ASPIRIN
     Dosage: UNK
  7. RANDIL [RANITIDINE HYDROCHLORIDE] [Concomitant]
     Dosage: UNK
  8. NITROMACK [Concomitant]
     Dosage: UNK
  9. ATOREZA [Concomitant]
     Dosage: UNK
  10. FLAGYL [Concomitant]
     Active Substance: METRONIDAZOLE\METRONIDAZOLE HYDROCHLORIDE
     Dosage: UNK
  11. CETAL [PARACETAMOL] [Concomitant]
     Dosage: UNK
  12. RANDIL [NICORANDIL] [Concomitant]
     Dosage: UNK

REACTIONS (3)
  - Vomiting [Recovering/Resolving]
  - Diarrhoea [Recovering/Resolving]
  - Pyrexia [Recovering/Resolving]
